FAERS Safety Report 19690340 (Version 1)
Quarter: 2021Q3

REPORT INFORMATION
  Report Type: Spontaneous
  Country: US (occurrence: US)
  Receive Date: 20210811
  Receipt Date: 20210811
  Transmission Date: 20211014
  Serious: No
  Sender: FDA-Public Use
  Company Number: None

PATIENT
  Age: 47 Year
  Sex: Male

DRUGS (1)
  1. NPLATE [Suspect]
     Active Substance: ROMIPLOSTIM
     Dosage: OTHER FREQUENCY:OTHER;?
     Route: 058
     Dates: start: 202103

REACTIONS (2)
  - Platelet count decreased [None]
  - Road traffic accident [None]

NARRATIVE: CASE EVENT DATE: 20210811
